FAERS Safety Report 10770809 (Version 1)
Quarter: 2015Q1

REPORT INFORMATION
  Report Type: Spontaneous
  Country: US (occurrence: None)
  Receive Date: 20150206
  Receipt Date: 20150206
  Transmission Date: 20150721
  Serious: No
  Sender: FDA-Public Use
  Company Number: HYP201305-000017

PATIENT
  Age: 48 Year
  Sex: Female
  Weight: 91.1 kg

DRUGS (27)
  1. ZYRTEC (CETIRIZINE) [Concomitant]
  2. FAMCYCLOVIR [Concomitant]
     Active Substance: FAMCICLOVIR
  3. SINGULAR (MONTELUKAST) [Concomitant]
  4. L-LYSINE [Concomitant]
     Active Substance: LYSINE
  5. SUDAFED (PSEUDOEPHEDRINE HCL) [Concomitant]
  6. CYANOCOBALAMIN (VITAMIN B-12) [Concomitant]
  7. SPIRONOLACTONE. [Concomitant]
     Active Substance: SPIRONOLACTONE
  8. ZINC SULFATE [Concomitant]
     Active Substance: ZINC SULFATE\ZINC SULFATE ANHYDROUS
  9. GEMFIBROZIL. [Concomitant]
     Active Substance: GEMFIBROZIL
  10. CYPROHEPTADINE. [Concomitant]
     Active Substance: CYPROHEPTADINE
  11. VALTREX (VALACYCLOVIR) [Concomitant]
  12. ERGOCALCIFEROL (VITAMIN D2) [Concomitant]
  13. IRON SUCROSE [Concomitant]
     Active Substance: IRON SUCROSE
  14. DOXYCYCLINE HYCLATE. [Concomitant]
     Active Substance: DOXYCYCLINE HYCLATE
  15. PREVACID [Concomitant]
     Active Substance: LANSOPRAZOLE
  16. FLEXERIL (CYCLOBENZAPRINE) [Concomitant]
  17. PRILOSEC (OMEPRAZOLE) [Concomitant]
     Active Substance: OMEPRAZOLE MAGNESIUM
  18. ACIDOPHILUS (LACTOBACILLUS ACIDOPHILUS) [Concomitant]
  19. RAVICTI [Suspect]
     Active Substance: GLYCEROL PHENYLBUTYRATE
     Route: 048
     Dates: start: 20130510, end: 20130514
  20. LEVOTHYROXINE [Concomitant]
     Active Substance: LEVOTHYROXINE
  21. XIFAXAN [Concomitant]
     Active Substance: RIFAXIMIN
  22. NEURONTIN [Concomitant]
     Active Substance: GABAPENTIN
  23. PEPTO-BISMOL (BISMUTH SUBSALICYLATE) [Concomitant]
  24. L-CITRULLINE [Concomitant]
     Active Substance: CITRULLINE
  25. RITALIN [Concomitant]
     Active Substance: METHYLPHENIDATE HYDROCHLORIDE
  26. CODEINE SULFATE (CODEINE SULFATE) [Concomitant]
  27. ASPIRIN. [Concomitant]
     Active Substance: ASPIRIN

REACTIONS (5)
  - Fatigue [None]
  - Abdominal pain upper [None]
  - Hypogeusia [None]
  - Irritability [None]
  - Nausea [None]

NARRATIVE: CASE EVENT DATE: 20130510
